FAERS Safety Report 8548457-9 (Version None)
Quarter: 2012Q3

REPORT INFORMATION
  Report Type: 
  Country: None (occurrence: None)
  Receive Date: 20120719
  Receipt Date: 20120719
  Transmission Date: 20120928
  Serious: Yes (Other)
  Sender: FDA-Public Use
  Company Number: None

PATIENT
  Age: 78 Year
  Sex: Female

DRUGS (1)
  1. TARCEVA [Suspect]
     Indication: LUNG NEOPLASM MALIGNANT
     Dosage: 150 MG DAILY PO
     Route: 048
     Dates: start: 20080101

REACTIONS (3)
  - SCAB [None]
  - RASH [None]
  - BLISTER [None]
